FAERS Safety Report 13680161 (Version 1)
Quarter: 2017Q2

REPORT INFORMATION
  Report Type: Spontaneous
  Country: US (occurrence: US)
  Receive Date: 20170622
  Receipt Date: 20170622
  Transmission Date: 20170830
  Serious: No
  Sender: FDA-Public Use
  Company Number: US-TEIKOKU PHARMA USA-TPU2017-00178

PATIENT
  Age: 66 Year
  Sex: Female
  Weight: 78.09 kg

DRUGS (3)
  1. DIAZEPAM. [Concomitant]
     Active Substance: DIAZEPAM
     Indication: MUSCLE RELAXANT THERAPY
     Dates: start: 20170224, end: 201703
  2. OXYCODONE HYDROCHLORIDE. [Concomitant]
     Active Substance: OXYCODONE HYDROCHLORIDE
     Indication: PAIN
     Dosage: 1 TABLET AS NEEDED FOR SEVERE PAIN
     Dates: start: 20170225, end: 2017
  3. LIDOCAINE PATCH [Suspect]
     Active Substance: LIDOCAINE
     Indication: MUSCLE STRAIN
     Dosage: APPLY 1 PATCH TO LEFT BUTTOCK AT THE AREA OF THE PAIN
     Route: 061
     Dates: start: 20170224, end: 20170312

REACTIONS (3)
  - Daydreaming [Unknown]
  - Drug ineffective for unapproved indication [Unknown]
  - Viral upper respiratory tract infection [Recovering/Resolving]

NARRATIVE: CASE EVENT DATE: 201704
